FAERS Safety Report 14039006 (Version 1)
Quarter: 2017Q4

REPORT INFORMATION
  Report Type: Spontaneous
  Country: US (occurrence: US)
  Receive Date: 20171004
  Receipt Date: 20171004
  Transmission Date: 20180321
  Serious: No
  Sender: FDA-Public Use
  Company Number: US-INDIVIOR LIMITED-INDV-098064-2017

PATIENT
  Age: 45 Year
  Sex: Male

DRUGS (10)
  1. SUBOXONE [Suspect]
     Active Substance: BUPRENORPHINE HYDROCHLORIDE\NALOXONE HYDROCHLORIDE
     Dosage: 16MG, TWO FILMS ON DAY TWO
     Route: 060
  2. SUBOXONE [Suspect]
     Active Substance: BUPRENORPHINE HYDROCHLORIDE\NALOXONE HYDROCHLORIDE
     Dosage: 6MG, UNK
     Route: 060
  3. SUBOXONE [Suspect]
     Active Substance: BUPRENORPHINE HYDROCHLORIDE\NALOXONE HYDROCHLORIDE
     Dosage: 0.5 OF THE FILM , UNK
     Route: 060
  4. SUBOXONE [Suspect]
     Active Substance: BUPRENORPHINE HYDROCHLORIDE\NALOXONE HYDROCHLORIDE
     Dosage: 2MG, UNK
     Route: 060
  5. SUBOXONE [Suspect]
     Active Substance: BUPRENORPHINE HYDROCHLORIDE\NALOXONE HYDROCHLORIDE
     Dosage: 1MG, UNK
     Route: 060
  6. SUBOXONE [Suspect]
     Active Substance: BUPRENORPHINE HYDROCHLORIDE\NALOXONE HYDROCHLORIDE
     Dosage: 0.75 OF THE FILM , UNK
     Route: 060
  7. SUBOXONE [Suspect]
     Active Substance: BUPRENORPHINE HYDROCHLORIDE\NALOXONE HYDROCHLORIDE
     Dosage: 4MG, UNK
     Route: 060
  8. SUBOXONE [Suspect]
     Active Substance: BUPRENORPHINE HYDROCHLORIDE\NALOXONE HYDROCHLORIDE
     Indication: DRUG USE DISORDER
     Dosage: 24MG, THREE FILMS ON DAY ONE
     Route: 060
     Dates: start: 201612
  9. SUBOXONE [Suspect]
     Active Substance: BUPRENORPHINE HYDROCHLORIDE\NALOXONE HYDROCHLORIDE
     Dosage: 8MG, UNK
     Route: 060
  10. SUBOXONE [Suspect]
     Active Substance: BUPRENORPHINE HYDROCHLORIDE\NALOXONE HYDROCHLORIDE
     Dosage: 0.25 OF THE FILM , UNK
     Route: 060
     Dates: start: 20170117, end: 20170117

REACTIONS (4)
  - Product preparation error [Recovered/Resolved]
  - Pain [Not Recovered/Not Resolved]
  - Product use issue [Recovered/Resolved]
  - Intentional underdose [Recovered/Resolved]

NARRATIVE: CASE EVENT DATE: 201612
